FAERS Safety Report 7961713-8 (Version None)
Quarter: 2011Q4

REPORT INFORMATION
  Report Type: 
  Country: None (occurrence: None)
  Receive Date: 20111207
  Receipt Date: 20111201
  Transmission Date: 20120403
  Serious: Yes (Hospitalization, Other)
  Sender: FDA-Public Use
  Company Number: CA-GLAXOSMITHKLINE-A0920991A

PATIENT
  Sex: Male

DRUGS (9)
  1. AMBRISENTAN [Suspect]
     Indication: PULMONARY HYPERTENSION
     Route: 048
     Dates: start: 20100313
  2. VIAGRA [Concomitant]
     Route: 065
  3. POTASSIUM ACETATE [Concomitant]
     Route: 065
  4. INHALER [Concomitant]
     Route: 065
  5. POTASSIUM ACETATE [Concomitant]
     Route: 065
  6. INHALER [Concomitant]
     Route: 065
  7. FUROSEMIDE [Concomitant]
     Route: 065
  8. VIAGRA [Concomitant]
     Route: 065
  9. FUROSEMIDE [Concomitant]
     Route: 065

REACTIONS (3)
  - HYPOAESTHESIA [None]
  - PULMONARY OEDEMA [None]
  - FOOT FRACTURE [None]
